FAERS Safety Report 18736356 (Version 1)
Quarter: 2021Q1

REPORT INFORMATION
  Report Type: Report from Study
  Country: US (occurrence: US)
  Receive Date: 20210113
  Receipt Date: 20210113
  Transmission Date: 20210419
  Serious: No
  Sender: FDA-Public Use
  Company Number: US-BIOVITRUM-2020US5034

PATIENT
  Sex: Male

DRUGS (4)
  1. KINERET [Suspect]
     Active Substance: ANAKINRA
     Indication: PRODUCT USED FOR UNKNOWN INDICATION
     Route: 058
     Dates: start: 20200902
  2. OMEPRAZOLE. [Concomitant]
     Active Substance: OMEPRAZOLE
  3. MORPHINE [Concomitant]
     Active Substance: MORPHINE
  4. LISINOPRIL. [Concomitant]
     Active Substance: LISINOPRIL

REACTIONS (6)
  - Injection site pruritus [Recovering/Resolving]
  - Injection site rash [Unknown]
  - Injection site erythema [Recovering/Resolving]
  - Product dose omission issue [Not Recovered/Not Resolved]
  - Drug ineffective [Unknown]
  - Injection site reaction [Not Recovered/Not Resolved]
